FAERS Safety Report 8602564-0 (Version None)
Quarter: 2012Q3

REPORT INFORMATION
  Report Type: 
  Country: None (occurrence: None)
  Receive Date: 20120817
  Receipt Date: 20120813
  Transmission Date: 20120928
  Serious: Yes (Hospitalization)
  Sender: FDA-Public Use
  Company Number: PHHY2012MX070922

PATIENT
  Age: 44 Year
  Sex: Female

DRUGS (1)
  1. GILENYA [Suspect]
     Indication: MULTIPLE SCLEROSIS
     Dosage: 0.5 MG, QD
     Route: 048
     Dates: start: 20120804

REACTIONS (5)
  - HEART RATE DECREASED [None]
  - ASTHENIA [None]
  - NAUSEA [None]
  - DIZZINESS [None]
  - ORTHOSTATIC HYPOTENSION [None]
